FAERS Safety Report 7045653-7 (Version None)
Quarter: 2010Q4

REPORT INFORMATION
  Report Type: 
  Country: None (occurrence: None)
  Receive Date: 20101014
  Receipt Date: 20101006
  Transmission Date: 20110411
  Serious: Yes (Hospitalization)
  Sender: FDA-Public Use
  Company Number: DE-ROCHE-732548

PATIENT
  Sex: Male
  Weight: 100 kg

DRUGS (15)
  1. BEVACIZUMAB [Suspect]
     Indication: COLON CANCER
     Dosage: DAY 1 AND DAY 15 OF A CYCLE, 4TH CYCLE
     Route: 042
  2. OXALIPLATIN [Suspect]
     Indication: COLON CANCER
     Dosage: ACCORDINGLY 173 MG, DAY 1 AND DAY 15 OF A CYCLE DURING 2 HOURS, 4TH CYCLE
     Route: 065
  3. LEUCOVORIN CALCIUM [Suspect]
     Indication: COLON CANCER
     Dosage: ACCORDINGLY 408 MG, DAY 1,2 AND DAY 15 OF A CYCLE, DURING 2 HOURS, 4TH CYCLE
     Route: 065
  4. FLUOROURACIL [Suspect]
     Indication: COLON CANCER
     Dosage: 400 MG/M2 (816 MG) AS BOLUS, 600 MG/M2 (1224 MG) VIA PORT (22H) DAY 1, 2 AND 15 OF A CYCLE, 4TH CYCL
     Route: 042
  5. KEVATRIL [Concomitant]
  6. FORTECORTIN [Concomitant]
     Route: 042
  7. NOVALGIN [Concomitant]
  8. BISOPROLOL [Concomitant]
  9. FUROSEMID [Concomitant]
  10. LERCANIDIPIN [Concomitant]
  11. MCP [Concomitant]
  12. MST [Concomitant]
  13. PANTOPRAZOLE SODIUM [Concomitant]
  14. AMITRIPTYLINE HCL [Concomitant]
  15. LACTULOSE [Concomitant]

REACTIONS (2)
  - ASCITES [None]
  - GENERAL PHYSICAL HEALTH DETERIORATION [None]
